FAERS Safety Report 5268566-X (Version None)
Quarter: 2007Q1

REPORT INFORMATION
  Report Type: 
  Country: None (occurrence: None)
  Receive Date: 20070313
  Receipt Date: 20070228
  Transmission Date: 20070707
  Serious: Yes (Other)
  Sender: FDA-Public Use
  Company Number: 15816

PATIENT
  Age: 30 Year
  Sex: Female

DRUGS (2)
  1. METHOTREXATE [Suspect]
     Indication: OVARIAN GERM CELL CHORIOCARCINOMA STAGE I
     Dosage: 30 MG QD IV
     Route: 042
  2. FOLIC ACID [Concomitant]

REACTIONS (2)
  - DRUG HYPERSENSITIVITY [None]
  - TOXIC SKIN ERUPTION [None]
